FAERS Safety Report 13718611 (Version 1)
Quarter: 2017Q3

REPORT INFORMATION
  Report Type: Spontaneous
  Country: US (occurrence: US)
  Receive Date: 20170705
  Receipt Date: 20170705
  Transmission Date: 20171127
  Serious: Yes (Hospitalization, Other)
  Sender: FDA-Public Use
  Company Number: US-PFIZER INC-2017287782

PATIENT
  Age: 65 Year
  Sex: Female
  Weight: 95 kg

DRUGS (5)
  1. VALPAX [Suspect]
     Active Substance: CLONAZEPAM
     Dosage: 10 MG, 2X/DAY
  2. DEPAKOTE [Suspect]
     Active Substance: DIVALPROEX SODIUM
     Indication: SEIZURE
     Dosage: 1000 MG, 2X/DAY (MORNING AND NIGHT)
     Dates: start: 200001
  3. DEPAKOTE [Suspect]
     Active Substance: DIVALPROEX SODIUM
     Dosage: 500 MG, 2X/DAY
  4. TOVIAZ [Suspect]
     Active Substance: FESOTERODINE FUMARATE
     Indication: URINARY INCONTINENCE
     Dosage: 8 MG, 1X/DAY
     Route: 048
  5. VALPAX [Suspect]
     Active Substance: CLONAZEPAM
     Indication: SEIZURE
     Dosage: 30 MG, 2X/DAY

REACTIONS (8)
  - Cerebrovascular accident [Unknown]
  - Epilepsy [Recovered/Resolved]
  - Musculoskeletal disorder [Recovering/Resolving]
  - Speech disorder [Recovering/Resolving]
  - Tremor [Recovering/Resolving]
  - Incorrect dose administered [Recovered/Resolved]
  - Generalised tonic-clonic seizure [Recovered/Resolved]
  - Head injury [Unknown]
